FAERS Safety Report 26006137 (Version 1)
Quarter: 2025Q4

REPORT INFORMATION
  Report Type: Spontaneous
  Country: EU (occurrence: EU)
  Receive Date: 20251106
  Receipt Date: 20251106
  Transmission Date: 20260118
  Serious: Yes (Life-Threatening, Other)
  Sender: AUROBINDO
  Company Number: EU-AFSSAPS-MP2025001397

PATIENT
  Sex: Male

DRUGS (3)
  1. CYAMEMAZINE [Suspect]
     Active Substance: CYAMEMAZINE
     Indication: Product used for unknown indication
     Dosage: 100 MILLIGRAM, 1 X TOTAL
     Route: 048
     Dates: start: 20250704, end: 20250704
  2. RISPERIDONE [Suspect]
     Active Substance: RISPERIDONE
     Indication: Product used for unknown indication
     Dosage: 4 MILLIGRAM, 1 X TOTAL
     Route: 048
     Dates: start: 20250704, end: 20250704
  3. HALDOL [Suspect]
     Active Substance: HALOPERIDOL
     Indication: Product used for unknown indication
     Dosage: 35 GTT DROPS, 1 X TOTAL (35 GOUTTES)
     Route: 048
     Dates: start: 20250704, end: 20250704

REACTIONS (4)
  - Altered state of consciousness [Recovered/Resolved]
  - Fall [Recovered/Resolved]
  - Dyskinesia [Recovered/Resolved]
  - Wrong patient [Recovered/Resolved]

NARRATIVE: CASE EVENT DATE: 20250704
